FAERS Safety Report 8297749-X (Version None)
Quarter: 2012Q2

REPORT INFORMATION
  Report Type: 
  Country: None (occurrence: None)
  Receive Date: 20120419
  Receipt Date: 20120410
  Transmission Date: 20120825
  Serious: Yes (Death, Hospitalization)
  Sender: FDA-Public Use
  Company Number: NZ-B.I. PHARMACEUTICALS,INC./RIDGEFIELD-2012-EU-02046GD

PATIENT
  Age: 93 Year
  Sex: Male
  Weight: 99 kg

DRUGS (8)
  1. FELODIPINE [Concomitant]
  2. DABIGATRAN [Suspect]
     Indication: ATRIAL FIBRILLATION
     Dosage: 300 MG
  3. DIPYRIDAMOLE [Suspect]
  4. DABIGATRAN [Suspect]
     Indication: CEREBROVASCULAR ACCIDENT
  5. AQUEOUSE CREAM [Concomitant]
  6. METOPROLOL TARTRATE [Concomitant]
  7. SIMVASTATIN [Concomitant]
  8. ACETAMINOPHEN [Concomitant]

REACTIONS (2)
  - DEATH [None]
  - CEREBRAL HAEMORRHAGE [None]
